FAERS Safety Report 23600063 (Version 1)
Quarter: 2024Q1

REPORT INFORMATION
  Report Type: Other
  Country: US (occurrence: None)
  Receive Date: 20240306
  Receipt Date: 20240306
  Transmission Date: 20240409
  Serious: Yes (Death)
  Sender: FDA-Public Use
  Company Number: US-ROCHE-3495655

PATIENT
  Age: 73 Year
  Sex: Female
  Weight: 49.9 kg

DRUGS (27)
  1. OCREVUS [Suspect]
     Active Substance: OCRELIZUMAB
     Indication: Relapsing multiple sclerosis
     Dosage: THEN 600 MG EVERY 6 MONTHS; DATE OF TREATMENT: 05/OCT/2020, 12/FEB/2018, 04/MAY/2021, /DEC/2022, 14/
     Route: 042
     Dates: start: 20180125
  2. ONDANSETRON [Concomitant]
     Active Substance: ONDANSETRON
  3. BENADRYL [Concomitant]
     Active Substance: DIPHENHYDRAMINE HYDROCHLORIDE
     Dosage: 25 MG LOT NUMBER: 063009, EXP /JUN/2025
     Route: 042
  4. SOLU-MEDROL [Concomitant]
     Active Substance: METHYLPREDNISOLONE SODIUM SUCCINATE
     Dosage: 125 MG, LOT NUMBER: HH0937, EXP: /MAY/2026
     Route: 042
  5. ACETAMINOPHEN [Concomitant]
     Active Substance: ACETAMINOPHEN
     Dosage: 1000 MG ORAL TAKEN AT HOME
  6. IBUPROFEN [Concomitant]
     Active Substance: IBUPROFEN
     Dosage: 600 MG ORAL
  7. ACCUNEB [Concomitant]
     Active Substance: ALBUTEROL SULFATE
     Dosage: 0.63 MG NEBULIZER SOLUTION
  8. TESSALON [Concomitant]
     Active Substance: BENZONATATE
     Dosage: 200 MG CAPSULE
  9. AMBIEN CR [Concomitant]
     Active Substance: ZOLPIDEM TARTRATE
     Dosage: 12.5 MG CR TAB
  10. RITALIN [Concomitant]
     Active Substance: METHYLPHENIDATE HYDROCHLORIDE
     Dosage: 10 MG TAB
  11. RITALIN [Concomitant]
     Active Substance: METHYLPHENIDATE HYDROCHLORIDE
     Dosage: 5 MG TAB
  12. KLONOPIN [Concomitant]
     Active Substance: CLONAZEPAM
     Dosage: 0.5 MG
     Route: 065
  13. DESYREL [Concomitant]
     Active Substance: TRAZODONE HYDROCHLORIDE
  14. COLACE [Concomitant]
     Active Substance: DOCUSATE SODIUM
  15. PYRIDIUM [Concomitant]
     Active Substance: PHENAZOPYRIDINE
  16. PHENERGAN [Concomitant]
     Active Substance: PROMETHAZINE HYDROCHLORIDE
     Dosage: 12.5 MG TAB
  17. MACRODANTIN [Concomitant]
     Active Substance: NITROFURANTOIN
  18. SARAFEM [Concomitant]
     Active Substance: FLUOXETINE HYDROCHLORIDE
  19. ZYPREXA [Concomitant]
     Active Substance: OLANZAPINE
     Dosage: 2.5 MG TAB
  20. PROZAC [Concomitant]
     Active Substance: FLUOXETINE HYDROCHLORIDE
  21. DUONEB [Concomitant]
     Active Substance: ALBUTEROL SULFATE\IPRATROPIUM BROMIDE
  22. PRILOSEC [Concomitant]
     Active Substance: OMEPRAZOLE MAGNESIUM
     Dosage: 40 MG CAPSULE
  23. HIPREX (UNITED STATES) [Concomitant]
  24. RESTASIS [Concomitant]
     Active Substance: CYCLOSPORINE
  25. XYLOCAINE [Concomitant]
     Active Substance: LIDOCAINE HYDROCHLORIDE
  26. OSCAL 500 [Concomitant]
  27. FISH OIL [Concomitant]
     Active Substance: FISH OIL
     Dosage: ORAL

REACTIONS (13)
  - COVID-19 [Fatal]
  - Pneumonia [Fatal]
  - Acute respiratory failure [Fatal]
  - Dyspnoea [Unknown]
  - Dehydration [Unknown]
  - Red blood cell count decreased [Unknown]
  - Neutrophil count increased [Unknown]
  - Lymphocyte count decreased [Unknown]
  - Granulocyte count increased [Unknown]
  - Blood urea increased [Unknown]
  - Blood alkaline phosphatase increased [Unknown]
  - Blood albumin decreased [Unknown]
  - Protein total decreased [Unknown]

NARRATIVE: CASE EVENT DATE: 20231231
